FAERS Safety Report 11198820 (Version 2)
Quarter: 2015Q3

REPORT INFORMATION
  Report Type: Spontaneous
  Country: US (occurrence: US)
  Receive Date: 20150618
  Receipt Date: 20150727
  Transmission Date: 20151125
  Serious: Yes (Other)
  Sender: FDA-Public Use
  Company Number: US-BRISTOL-MYERS SQUIBB COMPANY-BMS-2015-039106

PATIENT
  Sex: Male

DRUGS (2)
  1. SPRYCEL [Suspect]
     Active Substance: DASATINIB
     Indication: CHRONIC MYELOID LEUKAEMIA
     Dosage: 40 MG, QD
     Route: 048
  2. SPRYCEL [Suspect]
     Active Substance: DASATINIB
     Dosage: 100 MG, UNK
     Route: 048

REACTIONS (5)
  - Constipation [Unknown]
  - Pulmonary oedema [Unknown]
  - Malignant neoplasm progression [Unknown]
  - Nausea [Unknown]
  - Blood potassium increased [Unknown]
